FAERS Safety Report 23181739 (Version 1)
Quarter: 2023Q4

REPORT INFORMATION
  Report Type: Spontaneous
  Country: US (occurrence: None)
  Receive Date: 20231113
  Receipt Date: 20231113
  Transmission Date: 20240110
  Serious: Yes (Death)
  Sender: FDA-Public Use
  Company Number: None

PATIENT
  Age: 63 Year
  Sex: Male
  Weight: 91.5 kg

DRUGS (1)
  1. TECARTUS [Suspect]
     Active Substance: BREXUCABTAGENE AUTOLEUCEL
     Indication: Mantle cell lymphoma
     Dates: start: 20231017, end: 20231017

REACTIONS (8)
  - Cytokine release syndrome [None]
  - Disease progression [None]
  - General physical health deterioration [None]
  - Serum ferritin increased [None]
  - Blood triglycerides increased [None]
  - Haemophagocytic lymphohistiocytosis [None]
  - Hypotension [None]
  - Cardio-respiratory arrest [None]

NARRATIVE: CASE EVENT DATE: 20231017
